FAERS Safety Report 4407524-1 (Version None)
Quarter: 2004Q3

REPORT INFORMATION
  Report Type: 
  Country: None (occurrence: None)
  Receive Date: 20040721
  Receipt Date: 20040706
  Transmission Date: 20050211
  Serious: Yes (Hospitalization)
  Sender: FDA-Public Use
  Company Number: F01200301318

PATIENT
  Age: 50 Year
  Sex: Male

DRUGS (3)
  1. OXALIPLATIN [Suspect]
     Indication: RECTAL CANCER
     Dosage: 50 MG/M2 1/WEEK, INTRAVENOUS NOS
     Route: 042
     Dates: start: 20031110, end: 20031110
  2. (CAPECITABINE) - TABLET - 825 MG/M2 [Suspect]
     Dosage: 825 MG/M2 TWICE DAILY FOR 5 DAYS OF WEEKS 1 TO 5
     Route: 048
     Dates: start: 20031110, end: 20031114
  3. X-PREP (SENNA LEAF) [Concomitant]

REACTIONS (3)
  - PROCTALGIA [None]
  - PYREXIA [None]
  - RECTAL ABSCESS [None]
